FAERS Safety Report 24423688 (Version 1)
Quarter: 2024Q4

REPORT INFORMATION
  Report Type: Spontaneous
  Country: US (occurrence: None)
  Receive Date: 20241009
  Receipt Date: 20241009
  Transmission Date: 20250115
  Serious: No
  Sender: Public
  Company Number: None

PATIENT
  Age: 26 Year
  Sex: Female

DRUGS (4)
  1. AUSTEDO XR [Suspect]
     Active Substance: DEUTETRABENAZINE
     Indication: Tardive dyskinesia
     Dosage: FREQUENCY : AT BEDTIME;?
     Route: 048
  2. DEPLIN [Concomitant]
     Active Substance: LEVOMEFOLATE CALCIUM
  3. JARDIANCE [Concomitant]
     Active Substance: EMPAGLIFLOZIN
  4. VRAYLAR [Concomitant]
     Active Substance: CARIPRAZINE

REACTIONS (2)
  - Tardive dyskinesia [None]
  - Condition aggravated [None]

NARRATIVE: CASE EVENT DATE: 20241009
